FAERS Safety Report 9611180 (Version 1)
Quarter: 2013Q4

REPORT INFORMATION
  Report Type: Report from Study
  Country: NL (occurrence: NL)
  Receive Date: 20131009
  Receipt Date: 20131009
  Transmission Date: 20140711
  Serious: Yes (Hospitalization)
  Sender: FDA-Public Use
  Company Number: NL-ROCHE-1284528

PATIENT
  Age: 69 Year
  Sex: Female

DRUGS (9)
  1. BEVACIZUMAB [Suspect]
     Indication: BREAST CANCER
     Dosage: DATE OF LAST DOSE PRIOR TO THE SAE: 06/AUG/2013
     Route: 042
     Dates: start: 20130212
  2. PACLITAXEL [Suspect]
     Indication: BREAST CANCER
     Dosage: DATE OF LAST DOSE PRIOR TO THE SAE: 21/MAY/2013
     Route: 042
     Dates: start: 20130212
  3. PARACETAMOL [Suspect]
     Indication: BREAST CANCER
     Route: 065
  4. OXAZEPAM [Suspect]
     Indication: BREAST CANCER
     Route: 065
  5. RABEPRAZOLE [Concomitant]
     Route: 065
     Dates: start: 20110221
  6. LEVOTHYROXINE [Concomitant]
     Route: 065
     Dates: start: 20110309
  7. ZOLPIDEM [Concomitant]
     Route: 065
     Dates: start: 20110309
  8. SIMVASTATINE [Concomitant]
     Route: 065
     Dates: start: 20110309
  9. AMLODIPINE [Concomitant]
     Route: 065

REACTIONS (1)
  - Hepatic function abnormal [Recovered/Resolved with Sequelae]
